FAERS Safety Report 7769951-4 (Version None)
Quarter: 2011Q3

REPORT INFORMATION
  Report Type: 
  Country: None (occurrence: None)
  Receive Date: 20110922
  Receipt Date: 20110916
  Transmission Date: 20111222
  Serious: Yes (Other)
  Sender: FDA-Public Use
  Company Number: US-GLAXOSMITHKLINE-A0945332A

PATIENT
  Age: 65 Year
  Sex: Female

DRUGS (5)
  1. ASPIRIN [Concomitant]
  2. AMLODIPINE [Concomitant]
  3. PROMACTA [Suspect]
     Indication: IDIOPATHIC THROMBOCYTOPENIC PURPURA
     Dates: start: 20101018
  4. CRESTOR [Concomitant]
  5. SOTALOL HCL [Concomitant]

REACTIONS (1)
  - BLOOD ALKALINE PHOSPHATASE INCREASED [None]
